FAERS Safety Report 5741190-8 (Version None)
Quarter: 2008Q2

REPORT INFORMATION
  Report Type: 
  Country: None (occurrence: None)
  Receive Date: 20080516
  Receipt Date: 20080509
  Transmission Date: 20081010
  Serious: Yes (Hospitalization)
  Sender: FDA-Public Use
  Company Number: IT-AMGEN-UK273881

PATIENT
  Sex: Male

DRUGS (10)
  1. NEULASTA [Suspect]
     Indication: CHEMOTHERAPY
     Route: 058
     Dates: start: 20080327, end: 20080403
  2. ACYCLOVIR SODIUM [Concomitant]
  3. DIFLUCAN [Concomitant]
  4. LOSEC I.V. [Concomitant]
  5. COAPROVEL [Concomitant]
  6. LEVOFLOXACIN [Concomitant]
  7. CYCLOPHOSPHAMIDE [Concomitant]
     Route: 042
     Dates: start: 20080326
  8. EPIRUBICIN [Concomitant]
     Route: 042
     Dates: start: 20080326
  9. VINCRISTINE [Concomitant]
     Route: 042
     Dates: start: 20080326
  10. PREDNISONE TAB [Concomitant]
     Route: 048
     Dates: start: 20080326

REACTIONS (5)
  - BONE PAIN [None]
  - DYSPNOEA [None]
  - MUSCULAR WEAKNESS [None]
  - OVERDOSE [None]
  - PLEURAL EFFUSION [None]
